FAERS Safety Report 9394346 (Version 1)
Quarter: 2013Q3

REPORT INFORMATION
  Report Type: Other
  Country: NL (occurrence: NL)
  Receive Date: 20130711
  Receipt Date: 20130711
  Transmission Date: 20140515
  Serious: Yes (Hospitalization, Other)
  Sender: FDA-Public Use
  Company Number: NL-BRISTOL-MYERS SQUIBB COMPANY-19072818

PATIENT
  Age: 32 Year
  Sex: Male

DRUGS (2)
  1. TRIAMCINOLONE ACETONIDE [Suspect]
     Dosage: TRIAMCINOLONE 10MG INJ
     Route: 042
  2. RITONAVIR [Interacting]
     Indication: HIV INFECTION
     Route: 048

REACTIONS (4)
  - Pulmonary embolism [Recovered/Resolved]
  - Cushing^s syndrome [Recovered/Resolved]
  - Hypogonadism [Recovered/Resolved]
  - Drug interaction [Unknown]
